FAERS Safety Report 9213191 (Version 1)
Quarter: 2013Q1

REPORT INFORMATION
  Report Type: Spontaneous
  Country: US (occurrence: None)
  Receive Date: 20120820
  Receipt Date: 20120820
  Transmission Date: 20140127
  Serious: No
  Sender: FDA-Public Use
  Company Number: 1000030764

PATIENT
  Age: 56 Year
  Sex: Male

DRUGS (2)
  1. VIIBRYD [Suspect]
     Indication: DEPRESSION
     Route: 048
     Dates: start: 201205, end: 201205
  2. VIIBRYD [Suspect]
     Indication: DEPRESSION
     Route: 048
     Dates: start: 201205, end: 20120523

REACTIONS (7)
  - Hyperhidrosis [None]
  - Musculoskeletal stiffness [None]
  - Myalgia [None]
  - Diarrhoea [None]
  - Lymphadenopathy [None]
  - Pharyngeal disorder [None]
  - Pyrexia [None]
